FAERS Safety Report 19454590 (Version 2)
Quarter: 2021Q2

REPORT INFORMATION
  Report Type: Spontaneous
  Country: CA (occurrence: CA)
  Receive Date: 20210623
  Receipt Date: 20210624
  Transmission Date: 20210717
  Serious: Yes (Other)
  Sender: FDA-Public Use
  Company Number: CA-PFIZER INC-2021664776

PATIENT
  Age: 70 Year
  Sex: Male
  Weight: 73 kg

DRUGS (3)
  1. RUXIENCE [Suspect]
     Active Substance: RITUXIMAB-PVVR
     Indication: GRANULOMATOSIS WITH POLYANGIITIS
     Dosage: 1000 MG WEEK 0 AND WEEK 2
     Route: 042
  2. AZATHIOPRINE. [Concomitant]
     Active Substance: AZATHIOPRINE
     Dosage: 150 UNK, DAILY
  3. CYCLOPHOSPHAMIDE. [Concomitant]
     Active Substance: CYCLOPHOSPHAMIDE
     Dosage: 5.6 G , 7 INFUSIONS, 5.6G CUMULATIVE
     Dates: start: 20201106

REACTIONS (5)
  - Glomerulonephritis [Unknown]
  - Arthritis [Unknown]
  - Off label use [Unknown]
  - Pulmonary haemorrhage [Unknown]
  - Lung opacity [Unknown]

NARRATIVE: CASE EVENT DATE: 202011
